FAERS Safety Report 8405062-2 (Version None)
Quarter: 2012Q2

REPORT INFORMATION
  Report Type: 
  Country: None (occurrence: None)
  Receive Date: 20120601
  Receipt Date: 20120111
  Transmission Date: 20120825
  Serious: No
  Sender: FDA-Public Use
  Company Number: US-NOVEN-12US003920

PATIENT
  Sex: Male
  Weight: 30.839 kg

DRUGS (3)
  1. DAYTRANA [Suspect]
     Indication: ATTENTION DEFICIT/HYPERACTIVITY DISORDER
     Dosage: 20 MG, UNK
     Route: 062
     Dates: start: 20100901
  2. DAYTRANA [Suspect]
     Dosage: 10 MG
     Dates: start: 20090701
  3. CLONIDINE [Concomitant]
     Indication: INSOMNIA
     Dosage: 0.1 MG, UNK
     Route: 048

REACTIONS (4)
  - HEADACHE [None]
  - VOMITING [None]
  - TIC [None]
  - DECREASED APPETITE [None]
